FAERS Safety Report 8059364-2 (Version None)
Quarter: 2012Q1

REPORT INFORMATION
  Report Type: 
  Country: None (occurrence: None)
  Receive Date: 20120120
  Receipt Date: 20120120
  Transmission Date: 20120608
  Serious: Yes (Death)
  Sender: FDA-Public Use
  Company Number: None

PATIENT
  Age: 77 Year
  Sex: Female
  Weight: 67.131 kg

DRUGS (3)
  1. AMIODARONE HCL [Suspect]
     Indication: ATRIAL FIBRILLATION
     Dosage: 400MG
     Route: 016
     Dates: start: 20111129, end: 20111208
  2. AMIODARONE HCL [Concomitant]
     Dosage: 400MG
     Route: 016
     Dates: start: 20111209, end: 20111219
  3. WARFARIN SODIUM [Concomitant]
     Route: 048

REACTIONS (3)
  - LUNG DISORDER [None]
  - TOXICITY TO VARIOUS AGENTS [None]
  - BLOOD DISORDER [None]
